FAERS Safety Report 20588902 (Version 1)
Quarter: 2022Q1

REPORT INFORMATION
  Report Type: Spontaneous
  Country: US (occurrence: None)
  Receive Date: 20220314
  Receipt Date: 20220314
  Transmission Date: 20220423
  Serious: Yes (Death, Hospitalization, Other)
  Sender: FDA-Public Use
  Company Number: US-Purple Biotech Ltd.-PBL-2022-000008

PATIENT
  Age: 73 Year
  Sex: Female

DRUGS (1)
  1. AMLODIPINE [Suspect]
     Active Substance: AMLODIPINE BESYLATE
     Dosage: 400MG  (40 TABLETS)
     Route: 048

REACTIONS (9)
  - Multiple organ dysfunction syndrome [Fatal]
  - Completed suicide [Fatal]
  - Distributive shock [Not Recovered/Not Resolved]
  - Intentional overdose [Not Recovered/Not Resolved]
  - Mental status changes [Not Recovered/Not Resolved]
  - Agitation [Not Recovered/Not Resolved]
  - Acute kidney injury [Not Recovered/Not Resolved]
  - Hyperkalaemia [Not Recovered/Not Resolved]
  - Metabolic acidosis [Not Recovered/Not Resolved]
